FAERS Safety Report 13884746 (Version 1)
Quarter: 2017Q3

REPORT INFORMATION
  Report Type: Spontaneous
  Country: US (occurrence: US)
  Receive Date: 20170821
  Receipt Date: 20170821
  Transmission Date: 20171127
  Serious: Yes (Hospitalization, Other)
  Sender: FDA-Public Use
  Company Number: US-ZYDUS-016102

PATIENT
  Age: 56 Year
  Sex: Male

DRUGS (2)
  1. CYTARABINE/CYTARABINE HYDROCHLORIDE/CYTARABINE OCFOSFATE [Suspect]
     Active Substance: CYTARABINE
     Indication: CHEMOTHERAPY
     Dosage: 3 G/M2 EVERY 12 H (18 G/M2 OF TOTAL CYTARABINE (TOTAL DOSE WAS 36 G) IN CYCLE 2).
     Route: 065
  2. METHOTREXATE. [Suspect]
     Active Substance: METHOTREXATE
     Indication: CHEMOTHERAPY
     Route: 065

REACTIONS (13)
  - Disturbance in attention [Recovering/Resolving]
  - Gait inability [Recovered/Resolved]
  - Cerebellar syndrome [Recovering/Resolving]
  - Dysmetria [Recovering/Resolving]
  - Encephalopathy [Recovering/Resolving]
  - Mental status changes [Recovering/Resolving]
  - Ataxia [Recovering/Resolving]
  - Dysphagia [Recovering/Resolving]
  - Lethargy [Recovering/Resolving]
  - Electroencephalogram abnormal [None]
  - Mucormycosis [Recovering/Resolving]
  - Pyrexia [Recovering/Resolving]
  - Dysarthria [Recovering/Resolving]
